FAERS Safety Report 17430426 (Version 1)
Quarter: 2020Q1

REPORT INFORMATION
  Report Type: Spontaneous
  Country: US (occurrence: US)
  Receive Date: 20200215
  Receipt Date: 20200215
  Transmission Date: 20200409
  Serious: No
  Sender: FDA-Public Use
  Company Number: None

PATIENT
  Age: 7 Year
  Sex: Male
  Weight: 22.5 kg

DRUGS (4)
  1. GUANFACINE. [Concomitant]
     Active Substance: GUANFACINE
  2. IBUPROFEN. [Concomitant]
     Active Substance: IBUPROFEN
  3. OSELTAMIVIR PHOSPHATE FOR ORAL SUSPENSION [Suspect]
     Active Substance: OSELTAMIVIR PHOSPHATE
     Indication: INFLUENZA
     Route: 048
     Dates: start: 20200210, end: 20200214
  4. FOCALIN XR [Concomitant]
     Active Substance: DEXMETHYLPHENIDATE HYDROCHLORIDE

REACTIONS (7)
  - Middle insomnia [None]
  - Tremor [None]
  - Chills [None]
  - Vomiting [None]
  - Thirst [None]
  - Abdominal pain upper [None]
  - Screaming [None]

NARRATIVE: CASE EVENT DATE: 20200210
